FAERS Safety Report 4428580-0 (Version None)
Quarter: 2004Q3

REPORT INFORMATION
  Report Type: 
  Country: None (occurrence: None)
  Receive Date: 20040813
  Receipt Date: 20040730
  Transmission Date: 20050211
  Serious: Yes (Life-Threatening)
  Sender: FDA-Public Use
  Company Number: 2004AP02795

PATIENT
  Age: 79 Year
  Sex: Male
  Weight: 54 kg

DRUGS (10)
  1. IRESSA [Suspect]
     Indication: LUNG SQUAMOUS CELL CARCINOMA STAGE UNSPECIFIED
     Dosage: 250 MG DAILY PO
     Route: 048
     Dates: start: 20040215, end: 20040319
  2. KETEK [Suspect]
     Indication: PNEUMONIA
     Dosage: 600 MG DAILY PO
     Route: 048
     Dates: start: 20040315, end: 20040320
  3. CEFZON [Suspect]
     Indication: PNEUMONIA
     Dosage: 300 MG DAILY PO
     Route: 048
     Dates: start: 20040319, end: 20040324
  4. PRIMAXIN [Suspect]
     Indication: PNEUMONIA
     Dosage: 1 G DAILY
     Dates: start: 20040325, end: 20040326
  5. MINOCYCLINE HCL [Suspect]
     Indication: PNEUMONIA
     Dosage: 200 MG DAILY
     Dates: start: 20040315, end: 20040326
  6. MUCODYN [Concomitant]
  7. MUCOSOLVAN [Concomitant]
  8. AMARYL [Concomitant]
  9. CLARITHROMYCIN [Concomitant]
  10. TAMIFLU [Concomitant]

REACTIONS (6)
  - CONDITION AGGRAVATED [None]
  - DIABETES MELLITUS [None]
  - DRUG INEFFECTIVE [None]
  - EMPHYSEMA [None]
  - PNEUMONIA BACTERIAL [None]
  - RESPIRATORY FAILURE [None]
